FAERS Safety Report 8550434-9 (Version None)
Quarter: 2012Q3

REPORT INFORMATION
  Report Type: 
  Country: None (occurrence: None)
  Receive Date: 20120730
  Receipt Date: 20120724
  Transmission Date: 20120928
  Serious: Yes (Life-Threatening, Hospitalization)
  Sender: FDA-Public Use
  Company Number: US-ASTRAZENECA-2012SE49330

PATIENT
  Age: 89 Year
  Sex: Female

DRUGS (1)
  1. NEXIUM [Suspect]
     Route: 048

REACTIONS (7)
  - APPARENT DEATH [None]
  - OESOPHAGEAL DISORDER [None]
  - INTESTINAL OBSTRUCTION [None]
  - INTESTINAL ULCER [None]
  - GASTRIC DISORDER [None]
  - DIARRHOEA [None]
  - DRUG DOSE OMISSION [None]
